FAERS Safety Report 8286501-7 (Version None)
Quarter: 2012Q2

REPORT INFORMATION
  Report Type: 
  Country: None (occurrence: None)
  Receive Date: 20120416
  Receipt Date: 20120413
  Transmission Date: 20120825
  Serious: Yes (Other)
  Sender: FDA-Public Use
  Company Number: US-PFIZER INC-2012079983

PATIENT
  Sex: Male
  Weight: 99.8 kg

DRUGS (4)
  1. DILANTIN [Suspect]
     Indication: CONVULSION
     Dosage: 50 MG, DAILY
     Route: 048
  2. DILANTIN [Suspect]
     Dosage: 300 MG, DAILY
  3. PHENOBARBITAL [Concomitant]
     Indication: CONVULSION
     Dosage: 97.2 MG, 2X/DAY
  4. LEVETIRACETAM [Concomitant]
     Indication: CONVULSION
     Dosage: 500 MG

REACTIONS (4)
  - TOOTHACHE [None]
  - DENTAL CARIES [None]
  - MASTICATION DISORDER [None]
  - ORAL INFECTION [None]
